FAERS Safety Report 17543820 (Version 3)
Quarter: 2020Q2

REPORT INFORMATION
  Report Type: Report from Study
  Country: None (occurrence: TW)
  Receive Date: 20200316
  Receipt Date: 20200427
  Transmission Date: 20200713
  Serious: Yes (Death, Hospitalization)
  Sender: FDA-Public Use
  Company Number: TW-ABBVIE-20K-153-3321299-00

PATIENT
  Age: 39 Year
  Sex: Male

DRUGS (2)
  1. HUMIRA [Suspect]
     Active Substance: ADALIMUMAB
     Route: 058
     Dates: start: 2020, end: 20200409
  2. HUMIRA [Suspect]
     Active Substance: ADALIMUMAB
     Indication: CROHN^S DISEASE
     Route: 058
     Dates: start: 20191219, end: 20200130

REACTIONS (7)
  - Death [Fatal]
  - Pneumonia [Unknown]
  - Gastrooesophageal reflux disease [Unknown]
  - Melaena [Not Recovered/Not Resolved]
  - Nephrolithiasis [Unknown]
  - Chronic gastritis [Unknown]
  - Sepsis [Unknown]

NARRATIVE: CASE EVENT DATE: 20200302
